FAERS Safety Report 16268655 (Version 2)
Quarter: 2019Q3

REPORT INFORMATION
  Report Type: Spontaneous
  Country: US (occurrence: US)
  Receive Date: 20190503
  Receipt Date: 20190805
  Transmission Date: 20191004
  Serious: No
  Sender: FDA-Public Use
  Company Number: US-PHARMING-PHAUS2019000296

PATIENT

DRUGS (4)
  1. RUCONEST [Suspect]
     Active Substance: HUMAN C1-ESTERASE INHIBITOR
     Indication: PROPHYLAXIS
     Dosage: 2100 IU, EVERY 3 DAYS
     Route: 042
     Dates: start: 2015
  2. TAKHZYRO [Concomitant]
     Active Substance: LANADELUMAB-FLYO
     Indication: PROPHYLAXIS
  3. RUCONEST [Suspect]
     Active Substance: HUMAN C1-ESTERASE INHIBITOR
     Dosage: UNK IU, UNK
     Dates: start: 20160425
  4. RUCONEST [Suspect]
     Active Substance: HUMAN C1-ESTERASE INHIBITOR
     Indication: HEREDITARY ANGIOEDEMA
     Dosage: 2100 IU, PRN
     Route: 042
     Dates: start: 2016

REACTIONS (3)
  - Product use in unapproved indication [Unknown]
  - Hereditary angioedema [Unknown]
  - Surgery [Unknown]

NARRATIVE: CASE EVENT DATE: 201902
